FAERS Safety Report 13143311 (Version 4)
Quarter: 2018Q2

REPORT INFORMATION
  Report Type: Spontaneous
  Country: JP (occurrence: JP)
  Receive Date: 20170124
  Receipt Date: 20180516
  Transmission Date: 20180711
  Serious: Yes (Hospitalization, Other)
  Sender: FDA-Public Use
  Company Number: JP-ACTELION-A-CH2017-148399

PATIENT
  Age: 27 Year
  Sex: Male
  Weight: 62 kg

DRUGS (9)
  1. OPSUMIT [Suspect]
     Active Substance: MACITENTAN
     Dosage: 1 MG, UNK
     Route: 048
     Dates: start: 20161012
  2. FUROSEMIDE. [Concomitant]
     Active Substance: FUROSEMIDE
  3. OPSUMIT [Suspect]
     Active Substance: MACITENTAN
     Indication: PORTOPULMONARY HYPERTENSION
     Dosage: 2 MG, UNK
     Route: 048
     Dates: start: 20161012
  4. OPSUMIT [Suspect]
     Active Substance: MACITENTAN
     Dosage: 1 MG, UNK
     Route: 048
     Dates: start: 20161030
  5. REMODULIN [Suspect]
     Active Substance: TREPROSTINIL
     Indication: PORTOPULMONARY HYPERTENSION
     Dosage: UNK
     Route: 058
     Dates: start: 20160929
  6. REMODULIN [Suspect]
     Active Substance: TREPROSTINIL
     Dosage: 67.5 NG/KG, PER MIN
     Route: 058
  7. NAPROXEN. [Suspect]
     Active Substance: NAPROXEN
     Indication: PAIN
     Dosage: UNK
     Route: 065
     Dates: start: 2016
  8. VENTAVIS [Concomitant]
     Active Substance: ILOPROST
     Indication: PORTOPULMONARY HYPERTENSION
  9. SPIRONOLACTONE. [Concomitant]
     Active Substance: SPIRONOLACTONE

REACTIONS (8)
  - Bacteraemia [Unknown]
  - General physical condition abnormal [Unknown]
  - Cardiac failure [Unknown]
  - Leukopenia [Unknown]
  - Device related sepsis [Unknown]
  - Pseudomembranous colitis [Unknown]
  - Catheter management [Unknown]
  - Nausea [Recovered/Resolved]

NARRATIVE: CASE EVENT DATE: 20161018
